FAERS Safety Report 8804576 (Version 2)
Quarter: 2013Q1

REPORT INFORMATION
  Report Type: Spontaneous
  Country: JP (occurrence: JP)
  Receive Date: 20120924
  Receipt Date: 20130301
  Transmission Date: 20140127
  Serious: Yes (Death, Hospitalization, Other)
  Sender: FDA-Public Use
  Company Number: JP-TEVA-360764USA

PATIENT
  Age: 65 Year
  Sex: Female

DRUGS (1)
  1. TREANDA [Suspect]
     Indication: LYMPHOMA
     Route: 042

REACTIONS (4)
  - Myocardial infarction [Fatal]
  - Renal infarct [Fatal]
  - Pneumonia cytomegaloviral [Unknown]
  - Pancytopenia [Unknown]
